FAERS Safety Report 7730537-9 (Version None)
Quarter: 2011Q3

REPORT INFORMATION
  Report Type: 
  Country: None (occurrence: None)
  Receive Date: 20110901
  Receipt Date: 20110901
  Transmission Date: 20111222
  Serious: No
  Sender: FDA-Public Use
  Company Number: None

PATIENT
  Age: 62 Year
  Sex: Female
  Weight: 38.1022 kg

DRUGS (1)
  1. CITALOPRAM HYDROBROMIDE [Suspect]
     Indication: DEPRESSION
     Dosage: 1 TABLET EVERY DAY
     Dates: start: 20090624, end: 20100101

REACTIONS (3)
  - DRY MOUTH [None]
  - ANOSMIA [None]
  - AGEUSIA [None]
